FAERS Safety Report 5197890-4 (Version None)
Quarter: 2007Q1

REPORT INFORMATION
  Report Type: 
  Country: None (occurrence: None)
  Receive Date: 20070103
  Receipt Date: 20061221
  Transmission Date: 20070707
  Serious: Yes (Other)
  Sender: FDA-Public Use
  Company Number: US-SHR-US-2005-000878

PATIENT
  Age: 37 Year
  Sex: Male

DRUGS (5)
  1. BETASERON [Suspect]
     Indication: MULTIPLE SCLEROSIS
     Dosage: UNK MIU, UNK
     Route: 058
     Dates: start: 20020101
  2. EFFEXOR                                 /USA/ [Concomitant]
  3. DEPAKOTE [Concomitant]
  4. DETROL                                  /USA/ [Concomitant]
  5. RETINOL [Concomitant]

REACTIONS (2)
  - HEPATITIS C [None]
  - PHARMACEUTICAL PRODUCT COMPLAINT [None]
